FAERS Safety Report 9522110 (Version 1)
Quarter: 2013Q1

REPORT INFORMATION
  Report Type: Spontaneous
  Country: US (occurrence: None)
  Receive Date: 20130305
  Receipt Date: 20130305
  Transmission Date: 20140127
  Serious: Yes (Hospitalization, Other)
  Sender: FDA-Public Use
  Company Number: 163-21880-12072102

PATIENT
  Age: 61 Year
  Sex: Male
  Weight: 102.06 kg

DRUGS (14)
  1. REVLIMID (LENALIDOMIDE) (CAPSULES) [Suspect]
     Indication: CHRONIC LYMPHOCYTIC LEUKAEMIA
     Dosage: 1 IN 1 D
     Route: 048
     Dates: start: 20120412
  2. TYLENOL (PARACETAMOL) (UNKNOWN) [Concomitant]
  3. ALLOPURINOL (ALLOPURINOL) (UNKNOWN) [Concomitant]
  4. VALCYCLOVIR (VALCICLOVIR HYDROCHLORIDE) (UNKNOWN) [Concomitant]
  5. ALBUTEROL (SALBUTAMOL) (INHALANT) [Concomitant]
  6. ZOFRAN (ONDANSETRON HYDROCHLORIDE) (UNKNOWN) [Concomitant]
  7. HYDROCODONE (HYDROCODONE) (UNKNOWN) [Concomitant]
  8. NEUPOGEN (FILGRASTIM) (INJECTION) [Concomitant]
  9. BENADRYL (DIPHENHYDRAMINE) (UNKNOWN) [Concomitant]
  10. ASA (ACETYLSALICYLIC ACID) (UNKNOWN) [Concomitant]
  11. AVELOX (MOXIFLOXACIN HYDROCHLORIDE) (UNKNOWN) [Concomitant]
  12. CLIDAMYCIN (CLINDAMYCIN) (UNKNOWN) [Concomitant]
  13. AMOXICILLIN (AMOXICILLIN) (UNKNOWN) [Concomitant]
  14. CIPRO (CIPROFLOXACIN) (UNKNOWN) [Concomitant]

REACTIONS (3)
  - Local swelling [None]
  - Neutropenia [None]
  - Drug dose omission [None]
